FAERS Safety Report 16082589 (Version 31)
Quarter: 2022Q2

REPORT INFORMATION
  Report Type: Spontaneous
  Country: CA (occurrence: CA)
  Receive Date: 20190318
  Receipt Date: 20220513
  Transmission Date: 20220721
  Serious: Yes (Hospitalization, Other)
  Sender: FDA-Public Use
  Company Number: CA-CELLTRION INC.-2018CA021027

PATIENT

DRUGS (68)
  1. INFLECTRA [Suspect]
     Active Substance: INFLIXIMAB-DYYB
     Indication: Psoriatic arthropathy
     Dosage: 5 MG/KG, 0, 2, 6 THEN EVERY 6 WEEKS
     Route: 042
     Dates: start: 20180620, end: 20180912
  2. INFLECTRA [Suspect]
     Active Substance: INFLIXIMAB-DYYB
     Dosage: 5 MG/KG, 0, 2, 6 AND EVERY 6 WEEKS
     Route: 042
     Dates: start: 20180705
  3. INFLECTRA [Suspect]
     Active Substance: INFLIXIMAB-DYYB
     Dosage: 5 MG/KG, 0, 2, 6 AND EVERY 6 WEEKS
     Route: 042
     Dates: start: 20180801
  4. INFLECTRA [Suspect]
     Active Substance: INFLIXIMAB-DYYB
     Dosage: 5 MG/KG, 0, 2, 6 AND EVERY 6 WEEKS
     Route: 042
     Dates: start: 20180912
  5. INFLECTRA [Suspect]
     Active Substance: INFLIXIMAB-DYYB
     Dosage: 6 MG/KG, 0, 2, 6 AND EVERY 6 WEEKS
     Route: 042
     Dates: start: 20181024, end: 20200224
  6. INFLECTRA [Suspect]
     Active Substance: INFLIXIMAB-DYYB
     Dosage: 6 MG/KG, 0, 2, 6 THEN EVERY 6 WEEKS
     Route: 042
     Dates: start: 20181205
  7. INFLECTRA [Suspect]
     Active Substance: INFLIXIMAB-DYYB
     Dosage: 6 MG/KG, 0, 2, 6 THEN EVERY 6 WEEKS
     Route: 042
     Dates: start: 20190116
  8. INFLECTRA [Suspect]
     Active Substance: INFLIXIMAB-DYYB
     Dosage: 6 MG/KG, 0, 2, 6 THEN EVERY 6 WEEKS
     Route: 042
     Dates: start: 20190304
  9. INFLECTRA [Suspect]
     Active Substance: INFLIXIMAB-DYYB
     Dosage: 6 MG/KG, 0, 2, 6 THEN EVERY 6 WEEKS
     Route: 042
     Dates: start: 20190410
  10. INFLECTRA [Suspect]
     Active Substance: INFLIXIMAB-DYYB
     Dosage: 6 MG/KG, 0, 2, 6 THEN EVERY 6 WEEKS
     Route: 042
     Dates: start: 20190410
  11. INFLECTRA [Suspect]
     Active Substance: INFLIXIMAB-DYYB
     Dosage: 6 MG/KG, 0, 2, 6 THEN EVERY 6 WEEKS
     Route: 042
     Dates: start: 20190606
  12. INFLECTRA [Suspect]
     Active Substance: INFLIXIMAB-DYYB
     Dosage: 6 MG/KG, 0, 2, 6 THEN EVERY 6 WEEKS
     Route: 042
     Dates: start: 20190722
  13. INFLECTRA [Suspect]
     Active Substance: INFLIXIMAB-DYYB
     Dosage: 6 MG/KG, 0, 2, 6 THEN EVERY 6 WEEKS
     Route: 042
     Dates: start: 20191023
  14. INFLECTRA [Suspect]
     Active Substance: INFLIXIMAB-DYYB
     Dosage: 6 MG/KG, 0, 2, 6 THEN EVERY 6 WEEKS
     Route: 042
     Dates: start: 20191204
  15. INFLECTRA [Suspect]
     Active Substance: INFLIXIMAB-DYYB
     Dosage: 6 MG/KG, 0, 2, 6 THEN EVERY 6 WEEKS
     Route: 042
     Dates: start: 20200113
  16. INFLECTRA [Suspect]
     Active Substance: INFLIXIMAB-DYYB
     Dosage: 6 MG/KG, 0, 2, 6 THEN EVERY 6 WEEKS
     Route: 042
     Dates: start: 20200224
  17. INFLECTRA [Suspect]
     Active Substance: INFLIXIMAB-DYYB
     Dosage: 6 MG/KG, EVERY 4 WEEKS
     Route: 042
     Dates: start: 20200325, end: 20210202
  18. INFLECTRA [Suspect]
     Active Substance: INFLIXIMAB-DYYB
     Dosage: 6 MG/KG, EVERY 4 WEEKS
     Route: 042
     Dates: start: 20200325, end: 20220202
  19. INFLECTRA [Suspect]
     Active Substance: INFLIXIMAB-DYYB
     Dosage: 6 MG/KG, EVERY 4 WEEKS
     Route: 042
     Dates: start: 20200422
  20. INFLECTRA [Suspect]
     Active Substance: INFLIXIMAB-DYYB
     Dosage: 900 MG
     Route: 042
     Dates: start: 20200520
  21. INFLECTRA [Suspect]
     Active Substance: INFLIXIMAB-DYYB
     Dosage: 6 MG/KG, EVERY 4 WEEKS
     Route: 042
     Dates: start: 20200617
  22. INFLECTRA [Suspect]
     Active Substance: INFLIXIMAB-DYYB
     Dosage: 6 MG/KG, EVERY 4 WEEKS
     Route: 042
     Dates: start: 20200715
  23. INFLECTRA [Suspect]
     Active Substance: INFLIXIMAB-DYYB
     Dosage: 6 MG/KG, EVERY 4 WEEKS
     Route: 042
     Dates: start: 20200812
  24. INFLECTRA [Suspect]
     Active Substance: INFLIXIMAB-DYYB
     Dosage: 6 MG/KG, EVERY 4 WEEKS
     Route: 042
     Dates: start: 20201007
  25. INFLECTRA [Suspect]
     Active Substance: INFLIXIMAB-DYYB
     Dosage: 6 MG/KG, EVERY 4 WEEKS
     Route: 042
     Dates: start: 20201007
  26. INFLECTRA [Suspect]
     Active Substance: INFLIXIMAB-DYYB
     Dosage: 6 MG/KG, EVERY 4 WEEKS
     Route: 042
     Dates: start: 20201104
  27. INFLECTRA [Suspect]
     Active Substance: INFLIXIMAB-DYYB
     Dosage: 6 MG/KG, EVERY 4 WEEKS
     Route: 042
     Dates: start: 20210331
  28. INFLECTRA [Suspect]
     Active Substance: INFLIXIMAB-DYYB
     Dosage: 6 MG/KG, EVERY 4 WEEKS
     Route: 042
     Dates: start: 20210428
  29. INFLECTRA [Suspect]
     Active Substance: INFLIXIMAB-DYYB
     Dosage: 6 MG/KG, EVERY 4 WEEKS
     Route: 042
     Dates: start: 20210526
  30. INFLECTRA [Suspect]
     Active Substance: INFLIXIMAB-DYYB
     Dosage: 6 MG/KG (984 MG), EVERY 4 WEEKS
     Route: 042
     Dates: start: 20210623
  31. INFLECTRA [Suspect]
     Active Substance: INFLIXIMAB-DYYB
     Dosage: 6 MG/KG, EVERY 4 WEEKS
     Route: 042
     Dates: start: 20210915
  32. INFLECTRA [Suspect]
     Active Substance: INFLIXIMAB-DYYB
     Dosage: 6 MG/KG, EVERY 4 WEEKS
     Route: 042
     Dates: start: 20211013
  33. INFLECTRA [Suspect]
     Active Substance: INFLIXIMAB-DYYB
     Dosage: 6 MG/KG, EVERY 4 WEEKS
     Route: 042
     Dates: start: 20220202
  34. INFLECTRA [Suspect]
     Active Substance: INFLIXIMAB-DYYB
     Dosage: 6 MG/KG, EVERY 4 WEEKS
     Route: 042
     Dates: start: 20220209
  35. INFLECTRA [Suspect]
     Active Substance: INFLIXIMAB-DYYB
     Dosage: 10 MG/KG EVERY 4 WEEK
     Route: 042
     Dates: start: 20220225
  36. INFLECTRA [Suspect]
     Active Substance: INFLIXIMAB-DYYB
     Dosage: 10 MG/KG EVERY 4 WEEK
     Route: 042
     Dates: start: 20220228
  37. INFLECTRA [Suspect]
     Active Substance: INFLIXIMAB-DYYB
     Dosage: 10 MG/KG EVERY 4 WEEK
     Route: 042
     Dates: start: 20220427
  38. ACETAMINOPHEN [Concomitant]
     Active Substance: ACETAMINOPHEN
     Indication: Premedication
     Dosage: 650 MG, UNK
     Route: 048
     Dates: start: 20180705
  39. ACETAMINOPHEN [Concomitant]
     Active Substance: ACETAMINOPHEN
     Dosage: 650 MG, UNK
     Route: 048
     Dates: start: 20180912
  40. ACETAMINOPHEN [Concomitant]
     Active Substance: ACETAMINOPHEN
     Dosage: 650 MG, UNK
     Route: 048
     Dates: start: 20181024
  41. ACETAMINOPHEN [Concomitant]
     Active Substance: ACETAMINOPHEN
     Dosage: 650 MG, UNK
     Route: 048
     Dates: start: 20181205
  42. ACETAMINOPHEN [Concomitant]
     Active Substance: ACETAMINOPHEN
     Dosage: 650 MG, UNK
     Route: 048
     Dates: start: 20190116
  43. ACETAMINOPHEN [Concomitant]
     Active Substance: ACETAMINOPHEN
     Dosage: 650 MG, UNK
     Route: 048
     Dates: start: 20190410
  44. ACETAMINOPHEN [Concomitant]
     Active Substance: ACETAMINOPHEN
     Dosage: 650 MG, UNK
     Dates: start: 20190722
  45. ACETAMINOPHEN [Concomitant]
     Active Substance: ACETAMINOPHEN
     Dosage: 650 MG, UNK
     Route: 048
     Dates: start: 20191204
  46. ACETAMINOPHEN [Concomitant]
     Active Substance: ACETAMINOPHEN
     Dosage: 650 MG, UNK
     Route: 048
     Dates: start: 20200113
  47. ACETAMINOPHEN [Concomitant]
     Active Substance: ACETAMINOPHEN
     Dosage: 650 MG
     Dates: start: 20200325
  48. ATASOL COMPOUND [Concomitant]
     Indication: Meniscus injury
     Dosage: 1 DF
     Route: 048
     Dates: start: 202011
  49. DIPHENHYDRAMINE [Concomitant]
     Active Substance: DIPHENHYDRAMINE
     Indication: Premedication
     Dosage: 50 MG, UNK
     Route: 048
     Dates: start: 20180705
  50. DIPHENHYDRAMINE [Concomitant]
     Active Substance: DIPHENHYDRAMINE
     Dosage: 50 MG, UNK
     Route: 048
     Dates: start: 20180912
  51. DIPHENHYDRAMINE [Concomitant]
     Active Substance: DIPHENHYDRAMINE
     Dosage: 50 MG, UNK
     Route: 048
     Dates: start: 20181024
  52. DIPHENHYDRAMINE [Concomitant]
     Active Substance: DIPHENHYDRAMINE
     Dosage: 25 MG, UNK
     Route: 048
     Dates: start: 20181205
  53. DIPHENHYDRAMINE [Concomitant]
     Active Substance: DIPHENHYDRAMINE
     Dosage: 25 MG, UNK
     Route: 048
     Dates: start: 20190116
  54. DIPHENHYDRAMINE [Concomitant]
     Active Substance: DIPHENHYDRAMINE
     Dosage: 50 MG, UNK
     Route: 048
     Dates: start: 20190410
  55. DIPHENHYDRAMINE [Concomitant]
     Active Substance: DIPHENHYDRAMINE
     Dosage: 50 MG, UNK
     Dates: start: 20190722
  56. DIPHENHYDRAMINE [Concomitant]
     Active Substance: DIPHENHYDRAMINE
     Dosage: 25 MG, UNK
     Route: 048
     Dates: start: 20191204
  57. DIPHENHYDRAMINE [Concomitant]
     Active Substance: DIPHENHYDRAMINE
     Dosage: 50 MG, UNK
     Route: 048
     Dates: start: 20200113
  58. DIPHENHYDRAMINE [Concomitant]
     Active Substance: DIPHENHYDRAMINE
     Dosage: 50 MG, UNK
     Route: 048
     Dates: start: 20200224, end: 20200224
  59. DIPHENHYDRAMINE [Concomitant]
     Active Substance: DIPHENHYDRAMINE
     Dosage: 50 MG, UNK
     Dates: start: 20200325
  60. HYDROCORTISONE [Concomitant]
     Active Substance: HYDROCORTISONE
     Indication: Premedication
     Dosage: 100 MG, UNK
     Route: 042
     Dates: start: 20180705
  61. HYDROCORTISONE [Concomitant]
     Active Substance: HYDROCORTISONE
     Dosage: 100 MG, UNK
     Route: 042
     Dates: start: 20180912
  62. HYDROCORTISONE [Concomitant]
     Active Substance: HYDROCORTISONE
     Dosage: 100 MG, UNK
     Route: 042
     Dates: start: 20181024
  63. HYDROCORTISONE [Concomitant]
     Active Substance: HYDROCORTISONE
     Dosage: 100 MG, UNK
     Route: 042
     Dates: start: 20181205
  64. HYDROCORTISONE [Concomitant]
     Active Substance: HYDROCORTISONE
     Dosage: 100 MG, UNK
     Dates: start: 20190116
  65. HYDROCORTISONE [Concomitant]
     Active Substance: HYDROCORTISONE
     Dosage: 100 MG, UNK
     Route: 042
     Dates: start: 20190410
  66. HYDROCORTISONE [Concomitant]
     Active Substance: HYDROCORTISONE
     Dosage: 100 MG, UNK
     Dates: start: 20190722
  67. ZOMIG [Concomitant]
     Active Substance: ZOLMITRIPTAN
     Dosage: UNK, AS NEEDED
  68. ZOMIG [Concomitant]
     Active Substance: ZOLMITRIPTAN
     Dosage: 1 DF,DOSAGE INFORMATION NOT AVAILABLE

REACTIONS (38)
  - Viral infection [Recovered/Resolved]
  - Wrist fracture [Unknown]
  - Ankylosing spondylitis [Unknown]
  - Hypertension [Not Recovered/Not Resolved]
  - Type 2 diabetes mellitus [Unknown]
  - Therapeutic response shortened [Recovered/Resolved]
  - Therapeutic product effect decreased [Unknown]
  - Incorrect dose administered [Unknown]
  - Inappropriate schedule of product administration [Unknown]
  - Product prescribing error [Unknown]
  - Off label use [Unknown]
  - Off label use [Unknown]
  - Intentional product use issue [Unknown]
  - Blood pressure fluctuation [Not Recovered/Not Resolved]
  - Heart rate irregular [Not Recovered/Not Resolved]
  - Heart rate increased [Unknown]
  - Pharyngitis [Unknown]
  - Arthralgia [Unknown]
  - Ear infection [Recovered/Resolved]
  - Hyperhidrosis [Unknown]
  - Illness [Unknown]
  - Migraine [Not Recovered/Not Resolved]
  - Asthenopia [Not Recovered/Not Resolved]
  - Meniscus injury [Unknown]
  - Sleep apnoea syndrome [Recovering/Resolving]
  - Somnolence [Unknown]
  - Fatigue [Unknown]
  - Respiratory rate increased [Not Recovered/Not Resolved]
  - Weight decreased [Not Recovered/Not Resolved]
  - Hypoaesthesia [Not Recovered/Not Resolved]
  - Pain in extremity [Not Recovered/Not Resolved]
  - Loss of personal independence in daily activities [Not Recovered/Not Resolved]
  - Gait disturbance [Not Recovered/Not Resolved]
  - Condition aggravated [Not Recovered/Not Resolved]
  - Musculoskeletal stiffness [Unknown]
  - Pain [Unknown]
  - Joint swelling [Unknown]
  - COVID-19 [Unknown]

NARRATIVE: CASE EVENT DATE: 20180912
